FAERS Safety Report 5185321-X (Version None)
Quarter: 2006Q4

REPORT INFORMATION
  Report Type: 
  Country: None (occurrence: None)
  Receive Date: 20061220
  Receipt Date: 20061213
  Transmission Date: 20070319
  Serious: Yes (Death, Other)
  Sender: FDA-Public Use
  Company Number: PHBS2006ES19449

PATIENT
  Age: 56 Year
  Sex: Male

DRUGS (2)
  1. PREDNISONE TAB [Concomitant]
  2. CYCLOSPORINE [Suspect]
     Indication: LIVER TRANSPLANT
     Route: 065

REACTIONS (2)
  - LUNG SQUAMOUS CELL CARCINOMA STAGE III [None]
  - RESPIRATORY FAILURE [None]
